FAERS Safety Report 5702228-7 (Version None)
Quarter: 2008Q2

REPORT INFORMATION
  Report Type: 
  Country: None (occurrence: None)
  Receive Date: 20080411
  Receipt Date: 20080130
  Transmission Date: 20081010
  Serious: No
  Sender: FDA-Public Use
  Company Number: US-ABBOTT-08P-163-0436020-00

PATIENT
  Sex: Male
  Weight: 37.228 kg

DRUGS (1)
  1. DEPAKOTE [Suspect]
     Indication: CONVULSION
     Dosage: 125MG IN THE MORNING THEN 4 TABLETS 125 MG IN THE EVENING
     Route: 048
     Dates: start: 20060601

REACTIONS (2)
  - DRUG LEVEL INCREASED [None]
  - NASOPHARYNGITIS [None]
